FAERS Safety Report 4361156-2 (Version None)
Quarter: 2004Q2

REPORT INFORMATION
  Report Type: 
  Country: None (occurrence: None)
  Receive Date: 20040511
  Receipt Date: 20031010
  Transmission Date: 20050107
  Serious: Yes (Hospitalization, Other)
  Sender: FDA-Public Use
  Company Number: USA030740995

PATIENT
  Age: 41 Year
  Sex: Male
  Weight: 114 kg

DRUGS (3)
  1. ZYPREXA [Suspect]
     Indication: SOMNOLENCE
     Dosage: 30 MG/AT BEDTIME
     Dates: start: 20010101, end: 20030114
  2. PROZAC [Suspect]
     Indication: DEPRESSION
     Dosage: 20 MG/2 DAY
     Dates: start: 19930101
  3. TEGRETOL [Concomitant]

REACTIONS (18)
  - ABNORMAL DREAMS [None]
  - BLOOD GLUCOSE DECREASED [None]
  - CONVULSION [None]
  - DENTAL CARIES [None]
  - DIABETES MELLITUS [None]
  - HALLUCINATION [None]
  - HALLUCINATION, AUDITORY [None]
  - INJURY [None]
  - LIBIDO INCREASED [None]
  - PARANOIA [None]
  - PRESCRIBED OVERDOSE [None]
  - PSYCHOMOTOR HYPERACTIVITY [None]
  - ROAD TRAFFIC ACCIDENT [None]
  - SKIN ATROPHY [None]
  - SKIN STRIAE [None]
  - SUICIDAL IDEATION [None]
  - WEIGHT DECREASED [None]
  - WEIGHT INCREASED [None]
